FAERS Safety Report 7798940-9 (Version None)
Quarter: 2011Q4

REPORT INFORMATION
  Report Type: 
  Country: None (occurrence: None)
  Receive Date: 20111006
  Receipt Date: 20110928
  Transmission Date: 20120403
  Serious: No
  Sender: FDA-Public Use
  Company Number: US-PFIZER INC-2011231687

PATIENT
  Sex: Female
  Weight: 10.9 kg

DRUGS (3)
  1. GENOTROPIN [Suspect]
     Indication: TURNER'S SYNDROME
     Dosage: 0.5 MG, 1X/DAY
     Route: 030
     Dates: start: 20110901
  2. GENOTROPIN [Suspect]
     Indication: GROWTH HORMONE DEFICIENCY
  3. INSULIN [Concomitant]
     Dosage: UNK

REACTIONS (3)
  - ABNORMAL BEHAVIOUR [None]
  - INCORRECT ROUTE OF DRUG ADMINISTRATION [None]
  - HYPOVITAMINOSIS [None]
